FAERS Safety Report 6330609-X (Version None)
Quarter: 2009Q3

REPORT INFORMATION
  Report Type: 
  Country: None (occurrence: None)
  Receive Date: 20090827
  Receipt Date: 20090820
  Transmission Date: 20100115
  Serious: Yes (Hospitalization)
  Sender: FDA-Public Use
  Company Number: JP-BRISTOL-MYERS SQUIBB COMPANY-14735799

PATIENT
  Age: 74 Year
  Sex: Female
  Weight: 46 kg

DRUGS (5)
  1. ERBITUX [Suspect]
     Indication: COLON CANCER
     Dosage: REGIMEN 2: 16JUL09-23JUL09:400MG 1 IN 1 WEEK
     Route: 042
     Dates: start: 20090709, end: 20090709
  2. IRINOTECAN HCL [Suspect]
     Indication: COLON CANCER
     Route: 042
     Dates: start: 20090709, end: 20090723
  3. CHLOR-TRIMETON [Concomitant]
     Indication: PREMEDICATION
     Route: 042
     Dates: start: 20090709, end: 20090723
  4. DECADRON [Concomitant]
     Indication: PREMEDICATION
     Route: 042
     Dates: start: 20090709, end: 20090723
  5. KYTRIL [Concomitant]
     Indication: ANTIEMETIC SUPPORTIVE CARE
     Route: 065
     Dates: start: 20090709, end: 20090723

REACTIONS (2)
  - BONE MARROW FAILURE [None]
  - DIARRHOEA [None]
